FAERS Safety Report 7587916-2 (Version None)
Quarter: 2011Q3

REPORT INFORMATION
  Report Type: 
  Country: None (occurrence: None)
  Receive Date: 20110705
  Receipt Date: 20110628
  Transmission Date: 20111222
  Serious: No
  Sender: FDA-Public Use
  Company Number: US-BIOGENIDEC-2011BI023918

PATIENT
  Sex: Female

DRUGS (1)
  1. TYSABRI [Suspect]
     Indication: MULTIPLE SCLEROSIS
     Route: 042
     Dates: start: 20100604

REACTIONS (6)
  - ASTHENIA [None]
  - VISION BLURRED [None]
  - HYPOAESTHESIA [None]
  - HEARING IMPAIRED [None]
  - DYSURIA [None]
  - STRESS [None]
